FAERS Safety Report 10785412 (Version 2)
Quarter: 2015Q2

REPORT INFORMATION
  Report Type: Spontaneous
  Country: US (occurrence: US)
  Receive Date: 20150211
  Receipt Date: 20150605
  Transmission Date: 20150821
  Serious: Yes (Hospitalization, Disabling, Other)
  Sender: FDA-Public Use
  Company Number: US-009507513-1106USA02746

PATIENT
  Sex: Female
  Weight: 65.76 kg

DRUGS (5)
  1. FOSAMAX [Suspect]
     Active Substance: ALENDRONATE SODIUM
     Indication: BONE DENSITY DECREASED
     Dosage: 70 MG, QW
     Route: 048
     Dates: start: 20020218, end: 20090626
  2. FOSAMAX PLUS D [Suspect]
     Active Substance: ALENDRONATE SODIUM\CHOLECALCIFEROL
     Indication: BONE DENSITY DECREASED
     Dosage: 70 MG/2800 IU
     Route: 048
     Dates: start: 20070402, end: 20081108
  3. ALENDRONATE SODIUM. [Suspect]
     Active Substance: ALENDRONATE SODIUM
     Dosage: 70 MG, UNK
     Dates: start: 20081125, end: 20090526
  4. FOSAMAX [Suspect]
     Active Substance: ALENDRONATE SODIUM
     Indication: OSTEOPOROSIS
  5. ALENDRONATE SODIUM. [Suspect]
     Active Substance: ALENDRONATE SODIUM
     Indication: BONE DENSITY DECREASED
     Dosage: 70 MG, UNK
     Route: 048
     Dates: start: 2008, end: 2009

REACTIONS (30)
  - Femur fracture [Not Recovered/Not Resolved]
  - Vascular calcification [Unknown]
  - Vitamin D deficiency [Unknown]
  - Blood glucose increased [Unknown]
  - Pyrexia [Unknown]
  - Bone disorder [Not Recovered/Not Resolved]
  - Intervertebral disc degeneration [Unknown]
  - Uterine leiomyoma [Unknown]
  - Osteoarthritis [Unknown]
  - Cyst removal [Unknown]
  - Visual impairment [Unknown]
  - Extraskeletal ossification [Unknown]
  - Extraskeletal ossification [Unknown]
  - Intramedullary rod insertion [Unknown]
  - Haematoma [Recovering/Resolving]
  - Osteoarthritis [Unknown]
  - Loose body in joint [Unknown]
  - Iron deficiency anaemia [Unknown]
  - Cataract operation [Unknown]
  - Anaemia [Unknown]
  - Osteopenia [Unknown]
  - Subcutaneous emphysema [Unknown]
  - Bunion operation [Unknown]
  - Hypercholesterolaemia [Unknown]
  - Breath sounds abnormal [Unknown]
  - Spinal osteoarthritis [Unknown]
  - Hypertension [Unknown]
  - Chondrocalcinosis [Unknown]
  - Haematocrit abnormal [Recovering/Resolving]
  - Oedema peripheral [Unknown]

NARRATIVE: CASE EVENT DATE: 20040519
